FAERS Safety Report 23611061 (Version 1)
Quarter: 2024Q1

REPORT INFORMATION
  Report Type: Spontaneous
  Country: CA (occurrence: CA)
  Receive Date: 20240308
  Receipt Date: 20240308
  Transmission Date: 20240410
  Serious: Yes (Other)
  Sender: FDA-Public Use
  Company Number: CA-PFIZER INC-202300423234

PATIENT
  Age: 62 Year
  Sex: Female

DRUGS (2)
  1. ABRILADA [Suspect]
     Active Substance: ADALIMUMAB-AFZB
     Indication: Hidradenitis
     Dosage: 40 MG, WEEKLY-PREFILLED PEN
     Route: 058
     Dates: start: 20231129
  2. HUMIRA [Concomitant]
     Active Substance: ADALIMUMAB
     Dosage: 1 DF
     Dates: start: 202208

REACTIONS (4)
  - Foot fracture [Unknown]
  - Fall [Unknown]
  - Drug ineffective [Unknown]
  - Condition aggravated [Not Recovered/Not Resolved]

NARRATIVE: CASE EVENT DATE: 20240225
